FAERS Safety Report 7334778-4 (Version None)
Quarter: 2011Q1

REPORT INFORMATION
  Report Type: 
  Country: None (occurrence: None)
  Receive Date: 20110307
  Receipt Date: 20110224
  Transmission Date: 20110831
  Serious: Yes (Other)
  Sender: FDA-Public Use
  Company Number: US-JNJFOC-20110208591

PATIENT
  Sex: Female
  Weight: 86.18 kg

DRUGS (12)
  1. SYNTHROID [Concomitant]
     Indication: THYROID HORMONE REPLACEMENT THERAPY
     Route: 048
  2. SODIUM BICARBONATE [Concomitant]
     Indication: NEPHROLITHIASIS
     Route: 048
  3. ASACOL [Concomitant]
     Indication: GASTROINTESTINAL DISORDER
     Route: 048
  4. SINGULAIR [Concomitant]
     Indication: ASTHMA
     Route: 048
  5. DETROL LA [Concomitant]
     Indication: BLADDER SPASM
     Route: 048
  6. REMICADE [Suspect]
     Route: 042
  7. SPIRIVA [Concomitant]
     Indication: ASTHMA
     Route: 055
  8. REMICADE [Suspect]
     Indication: COLITIS ULCERATIVE
     Route: 042
  9. PREDNISONE [Suspect]
     Indication: PRODUCT USED FOR UNKNOWN INDICATION
  10. LOMOTIL [Concomitant]
     Indication: GASTROINTESTINAL DISORDER
     Route: 048
  11. ADVAIR DISKUS 100/50 [Concomitant]
     Indication: ASTHMA
     Route: 055
  12. ZOCOR [Concomitant]
     Indication: BLOOD CHOLESTEROL INCREASED
     Route: 048

REACTIONS (9)
  - HYPERGLYCAEMIA [None]
  - MALIGNANT MELANOMA [None]
  - HYPERSENSITIVITY [None]
  - DIZZINESS [None]
  - RASH PRURITIC [None]
  - BASAL CELL CARCINOMA [None]
  - HERPES ZOSTER [None]
  - BLOOD PRESSURE DECREASED [None]
  - ARTHRALGIA [None]
